FAERS Safety Report 26114633 (Version 1)
Quarter: 2025Q4

REPORT INFORMATION
  Report Type: Spontaneous
  Country: US (occurrence: US)
  Receive Date: 20251202
  Receipt Date: 20251202
  Transmission Date: 20260118
  Serious: No
  Sender: ROCHE
  Company Number: US-ROCHE-10000445129

PATIENT
  Sex: Female

DRUGS (1)
  1. ACTEMRA ACTPEN [Suspect]
     Active Substance: TOCILIZUMAB
     Indication: Ankylosing spondylitis
     Dosage: STRENGTH: 162 MG/ 0.9 M
     Route: 058
     Dates: start: 202504

REACTIONS (2)
  - Oedema peripheral [Unknown]
  - Off label use [Unknown]
